FAERS Safety Report 12182625 (Version 2)
Quarter: 2016Q2

REPORT INFORMATION
  Report Type: Spontaneous
  Country: US (occurrence: US)
  Receive Date: 20160316
  Receipt Date: 20160520
  Transmission Date: 20160815
  Serious: No
  Sender: FDA-Public Use
  Company Number: US-BIOGEN-2016BI00201400

PATIENT
  Age: 36 Year
  Sex: Female

DRUGS (1)
  1. PLEGRIDY [Suspect]
     Active Substance: PEGINTERFERON BETA-1A
     Indication: MULTIPLE SCLEROSIS
     Route: 065
     Dates: start: 20150909

REACTIONS (4)
  - Injection site erythema [Recovered/Resolved]
  - Injection site bruising [Recovered/Resolved]
  - Lower extremity mass [Unknown]
  - Injection site reaction [Unknown]

NARRATIVE: CASE EVENT DATE: 201603
